FAERS Safety Report 4490490-0 (Version None)
Quarter: 2004Q4

REPORT INFORMATION
  Report Type: 
  Country: None (occurrence: None)
  Receive Date: 20041027
  Receipt Date: 20041014
  Transmission Date: 20050328
  Serious: Yes (Life-Threatening)
  Sender: FDA-Public Use
  Company Number: K200400382

PATIENT
  Age: 69 Year
  Sex: Male

DRUGS (5)
  1. FLORINEF(FLUDROCORTISONE ACETATE) TABLET, 200MCG [Suspect]
     Indication: ORTHOSTATIC HYPOTENSION
     Dosage: 200 MCG, QD, ORAL
     Route: 048
     Dates: start: 20030801
  2. MIDODRINE HYDROCHLORIDE (MIDODRINE HYDROCHCLORIDE) 25MG [Suspect]
     Indication: ORTHOSTATIC HYPOTENSION
     Dosage: SEE IMAGE
     Route: 048
     Dates: start: 20030801, end: 20031101
  3. MIDODRINE HYDROCHLORIDE (MIDODRINE HYDROCHCLORIDE) 25MG [Suspect]
     Indication: ORTHOSTATIC HYPOTENSION
     Dosage: SEE IMAGE
     Route: 048
     Dates: start: 20031101
  4. PREDNISOLONE [Concomitant]
  5. SINEMET [Concomitant]

REACTIONS (6)
  - CEREBROVASCULAR ACCIDENT [None]
  - DELUSION [None]
  - FLUID INTAKE REDUCED [None]
  - HALLUCINATIONS, MIXED [None]
  - LOSS OF CONSCIOUSNESS [None]
  - PSYCHOTIC DISORDER [None]
